FAERS Safety Report 6828861-7 (Version None)
Quarter: 2010Q3

REPORT INFORMATION
  Report Type: 
  Country: None (occurrence: None)
  Receive Date: 20100709
  Receipt Date: 20070221
  Transmission Date: 20110219
  Serious: No
  Sender: FDA-Public Use
  Company Number: US-PFIZER INC-2007015004

PATIENT
  Sex: Male
  Weight: 107.5 kg

DRUGS (4)
  1. CHANTIX [Suspect]
     Indication: SMOKING CESSATION THERAPY
     Dates: start: 20070101
  2. XANAX [Concomitant]
  3. GARLIC [Concomitant]
  4. VITAMINS [Concomitant]

REACTIONS (3)
  - FLATULENCE [None]
  - URINE ODOUR ABNORMAL [None]
  - WEIGHT INCREASED [None]
